FAERS Safety Report 5001249-X (Version None)
Quarter: 2006Q1

REPORT INFORMATION
  Report Type: 
  Country: None (occurrence: None)
  Receive Date: 20060315
  Receipt Date: 20051212
  Transmission Date: 20060701
  Serious: No
  Sender: FDA-Public Use
  Company Number: 428807

PATIENT
  Age: 66 Year
  Sex: Female
  Weight: 74.8 kg

DRUGS (4)
  1. BONIVA [Suspect]
     Indication: OSTEOPOROSIS PROPHYLAXIS
     Dosage: ORAL
     Route: 048
  2. ASPIRIN [Concomitant]
  3. BETA BLOCKER NOS (BETA BLOCKER NOS) [Concomitant]
  4. CALCIUM (CALCIUM) [Concomitant]

REACTIONS (4)
  - EPISTAXIS [None]
  - HAEMOPTYSIS [None]
  - PAIN [None]
  - TOOTH LOSS [None]
